FAERS Safety Report 14769085 (Version 3)
Quarter: 2019Q3

REPORT INFORMATION
  Report Type: Spontaneous
  Country: DE (occurrence: DE)
  Receive Date: 20180417
  Receipt Date: 20190823
  Transmission Date: 20191004
  Serious: Yes (Death, Life-Threatening, Hospitalization, Other)
  Sender: FDA-Public Use
  Company Number: PHHY2015DE177693

PATIENT
  Age: 56 Year
  Sex: Female
  Weight: 49 kg

DRUGS (76)
  1. OXALIPLATIN. [Suspect]
     Active Substance: OXALIPLATIN
     Indication: COLORECTAL CANCER
     Dosage: 103.36 MG, Q2W
     Route: 042
     Dates: start: 20150603, end: 20150805
  2. 5-FLUOROURACIL [Suspect]
     Active Substance: FLUOROURACIL
     Dosage: 1 OT, Q2W (304-312 MG)
     Route: 040
     Dates: start: 20151124
  3. FOLINIC ACID [Suspect]
     Active Substance: LEUCOVORIN
     Indication: COLORECTAL CANCER
     Dosage: 1 OT, Q2W (240-468 MG)
     Route: 042
     Dates: start: 20150603
  4. HALOPERIDOL. [Concomitant]
     Active Substance: HALOPERIDOL
     Dosage: 0.04 MG, Q2W
     Route: 042
  5. HALOPERIDOL. [Concomitant]
     Active Substance: HALOPERIDOL
     Dosage: 2.5 MG, Q2W
     Route: 042
  6. NOVAMINSULFON [Concomitant]
     Active Substance: METAMIZOLE
     Dosage: 500 MG, UNK
     Route: 048
     Dates: start: 20150902, end: 20151103
  7. BEPANTHENE [Concomitant]
     Active Substance: DEXPANTHENOL
     Indication: PROPHYLAXIS
     Dosage: UNK
     Route: 065
  8. BEPANTHENE [Concomitant]
     Active Substance: DEXPANTHENOL
     Dosage: 1 DF, QD (1-1-1)
     Route: 048
  9. BEPANTHENE [Concomitant]
     Active Substance: DEXPANTHENOL
     Dosage: 1-1-1
     Route: 048
  10. 5-FLUOROURACIL [Suspect]
     Active Substance: FLUOROURACIL
     Dosage: 2340 MG, UNK
     Route: 042
  11. AVASTIN [Suspect]
     Active Substance: BEVACIZUMAB
     Indication: COLORECTAL CANCER
     Dosage: 245 MG, Q2W
     Route: 042
     Dates: start: 20150603, end: 20151124
  12. NOVAMINSULFON [Concomitant]
     Active Substance: METAMIZOLE
     Dosage: 4.5 MG, UNK
     Route: 042
     Dates: start: 20150901, end: 20150902
  13. NOVAMINSULFON [Concomitant]
     Active Substance: METAMIZOLE
     Dosage: 5 MG, UNK
     Route: 065
  14. MIRTAZAPIN [Concomitant]
     Active Substance: MIRTAZAPINE
     Dosage: 15 MG, QD (0-0-1)
     Route: 048
     Dates: start: 20150605, end: 20151208
  15. BEPANTHENE [Concomitant]
     Active Substance: DEXPANTHENOL
     Dosage: 1-1-1
     Route: 048
  16. 5-FLUOROURACIL [Suspect]
     Active Substance: FLUOROURACIL
     Dosage: 304 MG, Q2W
     Route: 040
     Dates: start: 20151124, end: 20151124
  17. BEVACIZUMAB. [Suspect]
     Active Substance: BEVACIZUMAB
     Indication: COLORECTAL CANCER METASTATIC
     Dosage: 245 MG, UNK (DATE OF LAST DOSE PRIOR TO SAE: 30/JUN/20155 MG/KG)
     Route: 042
     Dates: start: 20150603, end: 20151124
  18. HALOPERIDOL. [Concomitant]
     Active Substance: HALOPERIDOL
     Dosage: 15 GTT, Q2W
     Route: 048
     Dates: start: 20150902, end: 201511
  19. NOVAMINSULFON [Concomitant]
     Active Substance: METAMIZOLE
     Dosage: 1500 MG, UNK
     Route: 048
     Dates: start: 20150902, end: 20151103
  20. NOVALGIN [Concomitant]
     Dosage: 15000 MG, UNK
     Route: 042
     Dates: start: 20150721, end: 20150810
  21. MIRTAZAPIN [Concomitant]
     Active Substance: MIRTAZAPINE
     Indication: ADJUSTMENT DISORDER WITH DEPRESSED MOOD
     Dosage: 15 MG, QD
     Route: 048
  22. ZOFRAN [Concomitant]
     Active Substance: ONDANSETRON HYDROCHLORIDE
     Indication: VOMITING
     Dosage: 8 MG, QD (1-0-0)
     Route: 048
     Dates: start: 20150605
  23. BEPANTHENE [Concomitant]
     Active Substance: DEXPANTHENOL
     Dosage: UNK
  24. OXALIPLATIN. [Suspect]
     Active Substance: OXALIPLATIN
     Dosage: 114 MG, UNK
     Route: 042
     Dates: start: 20150903, end: 20151104
  25. OXALIPLATIN. [Suspect]
     Active Substance: OXALIPLATIN
     Dosage: 117 MG, Q2W
     Route: 042
     Dates: start: 20160126, end: 20160126
  26. 5-FLUOROURACIL [Suspect]
     Active Substance: FLUOROURACIL
     Dosage: 1 OT, Q2W (304-312 MG)
     Route: 040
     Dates: start: 20160212
  27. 5-FLUOROURACIL [Suspect]
     Active Substance: FLUOROURACIL
     Dosage: 304-312 MG
     Route: 040
     Dates: start: 20151124, end: 20160212
  28. IRINOTECAN [Suspect]
     Active Substance: IRINOTECAN
     Indication: COLORECTAL CANCER
     Dosage: 200 MG, Q2W
     Route: 042
     Dates: start: 20150603, end: 20150630
  29. BEVACIZUMAB. [Suspect]
     Active Substance: BEVACIZUMAB
     Indication: INTESTINAL ADENOCARCINOMA
     Dosage: 260 MG, UNK
     Route: 042
     Dates: start: 20160212, end: 20160212
  30. ONDANSETRON [Concomitant]
     Active Substance: ONDANSETRON
     Indication: NAUSEA
     Dosage: 8 MG, UNK
     Route: 048
     Dates: start: 20150604
  31. HALOPERIDOL. [Concomitant]
     Active Substance: HALOPERIDOL
     Dosage: 5 GTT, UNK
     Route: 048
     Dates: start: 20150902, end: 201511
  32. NOVAMINSULFON [Concomitant]
     Active Substance: METAMIZOLE
     Dosage: 5000 MG, UNK
     Route: 042
     Dates: start: 20160225
  33. NOVALGIN [Concomitant]
     Indication: BACK PAIN
     Dosage: 2000 MG, UNK
     Route: 048
     Dates: start: 20150602, end: 20150728
  34. 5-FLUOROURACIL [Suspect]
     Active Substance: FLUOROURACIL
     Indication: COLORECTAL CANCER
     Dosage: 4000 MG, Q2W
     Route: 042
     Dates: start: 20150603, end: 20150805
  35. 5-FLUOROURACIL [Suspect]
     Active Substance: FLUOROURACIL
     Dosage: 3420 MG, Q2W
     Route: 041
     Dates: start: 20150903, end: 20151106
  36. 5-FLUOROURACIL [Suspect]
     Active Substance: FLUOROURACIL
     Dosage: 456 MG, Q2W
     Route: 040
     Dates: start: 20150903, end: 20151104
  37. IRINOTECAN [Suspect]
     Active Substance: IRINOTECAN
     Dosage: 125 MG, Q2W
     Route: 042
     Dates: start: 20150723, end: 20150805
  38. FOLINIC ACID [Suspect]
     Active Substance: LEUCOVORIN
     Dosage: 312 MG, Q2W
     Route: 042
  39. FOLINIC ACID [Suspect]
     Active Substance: LEUCOVORIN
     Dosage: 468 MG, Q2W
     Route: 042
     Dates: start: 20160126, end: 20160126
  40. NEXIUM [Concomitant]
     Active Substance: ESOMEPRAZOLE MAGNESIUM
     Indication: PROPHYLAXIS
     Dosage: 40 MG, QD
     Route: 048
     Dates: start: 20150602, end: 20160224
  41. KEPPRA [Concomitant]
     Active Substance: LEVETIRACETAM
     Indication: PRODUCT USED FOR UNKNOWN INDICATION
     Dosage: 1000 MG, UNK
     Route: 042
     Dates: start: 20160301
  42. NOVALGIN [Concomitant]
     Dosage: 1500 MG, UNK
     Route: 048
     Dates: start: 20150902
  43. NOVALGIN [Concomitant]
     Dosage: 500 MG, QD
     Route: 048
     Dates: start: 20150602, end: 20150728
  44. OXALIPLATIN. [Suspect]
     Active Substance: OXALIPLATIN
     Dosage: 78 MG, Q2W
     Route: 042
     Dates: start: 20160108, end: 20160212
  45. OXALIPLATIN. [Suspect]
     Active Substance: OXALIPLATIN
     Dosage: 78 MG, Q2W
     Route: 042
     Dates: start: 20160212, end: 20160212
  46. NOVAMINSULFON [Concomitant]
     Active Substance: METAMIZOLE
     Dosage: 6 MG, UNK
     Route: 042
     Dates: start: 20150831, end: 20150901
  47. NOVAMINSULFON [Concomitant]
     Active Substance: METAMIZOLE
     Dosage: 1000 MG, UNK
     Route: 042
     Dates: start: 20160225, end: 20160226
  48. NOVALGIN [Concomitant]
     Dosage: 500 MG, QD
     Route: 048
     Dates: start: 20150902
  49. NOVALGIN [Concomitant]
     Dosage: 1 G, QD
     Route: 042
     Dates: start: 20160225, end: 20160226
  50. OXALIPLATIN. [Suspect]
     Active Substance: OXALIPLATIN
     Dosage: 76 MG, Q2W
     Route: 042
     Dates: start: 20151124, end: 20151124
  51. 5-FLUOROURACIL [Suspect]
     Active Substance: FLUOROURACIL
     Dosage: 312 MG, Q2W
     Route: 040
     Dates: start: 20160108, end: 20160112
  52. 5-FLUOROURACIL [Suspect]
     Active Substance: FLUOROURACIL
     Dosage: 3510 MG, Q2W
     Route: 041
     Dates: start: 20160126, end: 20160127
  53. 5-FLUOROURACIL [Suspect]
     Active Substance: FLUOROURACIL
     Dosage: 304-312 MG
     Route: 040
     Dates: start: 20151124, end: 20160212
  54. FOLINIC ACID [Suspect]
     Active Substance: LEUCOVORIN
     Dosage: 240 MG, Q2W
     Route: 042
     Dates: start: 20150603, end: 20150805
  55. FOLINIC ACID [Suspect]
     Active Substance: LEUCOVORIN
     Dosage: 456 MG, Q2W
     Route: 042
     Dates: start: 20150903, end: 20151104
  56. FOLINIC ACID [Suspect]
     Active Substance: LEUCOVORIN
     Dosage: 304 MG, Q2W
     Route: 042
     Dates: start: 20151124, end: 20151124
  57. AVASTIN [Suspect]
     Active Substance: BEVACIZUMAB
     Dosage: 245 MG, Q2W
     Route: 042
  58. AVASTIN [Suspect]
     Active Substance: BEVACIZUMAB
     Dosage: 260 MG, Q2W
     Route: 042
     Dates: start: 20160212, end: 20160212
  59. HALOPERIDOL. [Concomitant]
     Active Substance: HALOPERIDOL
     Dosage: 0.03 MG, Q2W
     Route: 042
  60. HALOPERIDOL. [Concomitant]
     Active Substance: HALOPERIDOL
     Dosage: 0.05 MG, Q2W
     Route: 042
  61. NOVAMINSULFON [Concomitant]
     Active Substance: METAMIZOLE
     Indication: COLORECTAL CANCER METASTATIC
     Dosage: 7.5 MG, UNK
     Route: 042
     Dates: start: 20150826, end: 20150831
  62. NOVAMINSULFON [Concomitant]
     Active Substance: METAMIZOLE
     Dosage: 5 MG, UNK
     Route: 065
  63. NOVAMINSULFON [Concomitant]
     Active Substance: METAMIZOLE
     Dosage: 10.5 MG, UNK
     Route: 042
     Dates: start: 20150810, end: 20150826
  64. NOVAMINSULFON [Concomitant]
     Active Substance: METAMIZOLE
     Dosage: 1000 MG, UNK
     Route: 048
  65. NOVALGIN [Concomitant]
     Indication: TUMOUR PAIN
     Dosage: 3 G, UNK
     Route: 042
     Dates: start: 20160225, end: 20160226
  66. MIRTAZAPIN [Concomitant]
     Active Substance: MIRTAZAPINE
     Dosage: 15 MG, UNK (0-0-1)
     Route: 048
  67. PEGFILGRASTIM [Concomitant]
     Active Substance: PEGFILGRASTIM
     Indication: PROPHYLAXIS
     Dosage: 6 MG, QD (SINCE 2ND CYCLE OF THERAPY)
     Route: 058
     Dates: start: 20150620, end: 20151023
  68. ZOFRAN [Concomitant]
     Active Substance: ONDANSETRON HYDROCHLORIDE
     Dosage: 1-0-0
     Route: 048
     Dates: start: 20150605
  69. 5-FLUOROURACIL [Suspect]
     Active Substance: FLUOROURACIL
     Dosage: 2280 MG, Q2W
     Route: 042
     Dates: start: 20151124, end: 20151126
  70. 5-FLUOROURACIL [Suspect]
     Active Substance: FLUOROURACIL
     Dosage: 468 MG, Q2W
     Route: 040
     Dates: start: 20160126, end: 20160126
  71. HALOPERIDOL. [Concomitant]
     Active Substance: HALOPERIDOL
     Indication: VOMITING
     Dosage: 0.07 MG, Q2W
     Route: 042
  72. NEXIUM [Concomitant]
     Active Substance: ESOMEPRAZOLE MAGNESIUM
     Dosage: 1 OT, QD
     Route: 042
     Dates: start: 20160225
  73. KEPPRA [Concomitant]
     Active Substance: LEVETIRACETAM
     Dosage: 500 MG, UNK
     Route: 042
     Dates: start: 20160301
  74. NOVALGIN [Concomitant]
     Dosage: 5000 MG, QD
     Route: 042
     Dates: start: 20150721, end: 20150810
  75. EFFENTORA [Concomitant]
     Active Substance: FENTANYL CITRATE
     Indication: PAIN
     Dosage: 100 UG, UNK
     Route: 048
  76. BEPANTHENE [Concomitant]
     Active Substance: DEXPANTHENOL
     Indication: MUCOSAL INFLAMMATION
     Dosage: 3 UNK, TID
     Route: 048

REACTIONS (9)
  - Venous thrombosis limb [Recovered/Resolved]
  - Optic nerve disorder [Unknown]
  - Pneumonia [Recovered/Resolved]
  - Disturbance in attention [Fatal]
  - Metastases to meninges [Recovering/Resolving]
  - Neutropenia [Recovered/Resolved]
  - Pulmonary embolism [Recovered/Resolved]
  - Headache [Not Recovered/Not Resolved]
  - Overdose [Unknown]

NARRATIVE: CASE EVENT DATE: 20150617
